FAERS Safety Report 8143726-9 (Version None)
Quarter: 2012Q1

REPORT INFORMATION
  Report Type: 
  Country: None (occurrence: None)
  Receive Date: 20120217
  Receipt Date: 20120210
  Transmission Date: 20120608
  Serious: No
  Sender: FDA-Public Use
  Company Number: FR-ASTELLAS-2011EU005692

PATIENT
  Sex: Male
  Weight: 92 kg

DRUGS (3)
  1. PROGRAF [Suspect]
     Indication: PROPHYLAXIS AGAINST TRANSPLANT REJECTION
     Dosage: 2 MG, UNKNOWN/D
     Route: 048
     Dates: start: 20020228, end: 20110818
  2. VITAMIN D [Concomitant]
     Indication: OSTEOPOROSIS PROPHYLAXIS
     Dosage: 1 DF, MONTHLY
     Route: 048
     Dates: start: 20100810
  3. MYCOPHENOLATE MOFETIL (CELLCEPT) [Suspect]
     Indication: PROPHYLAXIS AGAINST TRANSPLANT REJECTION
     Dosage: 1.5 G, UNKNOWN/D
     Route: 048
     Dates: start: 20020228

REACTIONS (1)
  - DIARRHOEA [None]
